FAERS Safety Report 8514741-8 (Version None)
Quarter: 2012Q3

REPORT INFORMATION
  Report Type: 
  Country: None (occurrence: None)
  Receive Date: 20120717
  Receipt Date: 20120710
  Transmission Date: 20120928
  Serious: Yes (Hospitalization, Other)
  Sender: FDA-Public Use
  Company Number: US-BAYER-2012-001276

PATIENT
  Age: 16 Year
  Sex: Female
  Weight: 60.771 kg

DRUGS (12)
  1. YASMIN [Suspect]
  2. MEDROL [Concomitant]
     Dosage: UNK
     Dates: start: 20091101
  3. UNCODEABLE ^UNCLASSIFIABLE^ [Concomitant]
     Dosage: UNK
     Dates: start: 20091201
  4. IBUPROFEN [Concomitant]
     Indication: PAIN IN EXTREMITY
     Dosage: 600 MG, PRN
     Dates: start: 20091201
  5. ALLEGRA-D 12 HOUR [Concomitant]
     Dosage: UNK
     Dates: start: 20091201
  6. YAZ [Suspect]
     Indication: CONTRACEPTION
     Dosage: UNK
     Dates: start: 20090217, end: 20091217
  7. YAZ [Suspect]
     Indication: ACNE
  8. AMOXICILLIN AND CLAVULANATE POTASSIUM [Concomitant]
     Dosage: 875 MG, BID
     Dates: start: 20091203, end: 20091213
  9. NASONEX [Concomitant]
     Dosage: UNK
     Dates: start: 20091201
  10. BIAXIN [Concomitant]
     Dosage: UNK
     Dates: start: 20091201
  11. BENADRYL [Concomitant]
     Dosage: UNK
     Dates: start: 20091101
  12. KENALOG [Concomitant]
     Dosage: UNK
     Dates: start: 20091101

REACTIONS (16)
  - SKIN DISCOLOURATION [None]
  - OEDEMA PERIPHERAL [None]
  - HYPOAESTHESIA [None]
  - DEPRESSION [None]
  - FEELING COLD [None]
  - PAIN IN EXTREMITY [None]
  - DEEP VEIN THROMBOSIS [None]
  - PAIN [None]
  - INJURY [None]
  - FEELING HOT [None]
  - MUSCLE STRAIN [None]
  - MENTAL DISORDER [None]
  - DISTURBANCE IN ATTENTION [None]
  - FATIGUE [None]
  - EMOTIONAL DISTRESS [None]
  - POST THROMBOTIC SYNDROME [None]
